FAERS Safety Report 16985238 (Version 1)
Quarter: 2019Q4

REPORT INFORMATION
  Report Type: Spontaneous
  Country: CA (occurrence: CA)
  Receive Date: 20191101
  Receipt Date: 20191101
  Transmission Date: 20200122
  Serious: Yes (Death)
  Sender: FDA-Public Use
  Company Number: CA-PFIZER INC-2019467329

PATIENT
  Age: 71 Year
  Sex: Female
  Weight: 37 kg

DRUGS (7)
  1. ZOPICLONE [Suspect]
     Active Substance: ZOPICLONE
     Dosage: 7.5 MG, 1X/DAY
     Route: 048
  2. NIFEDIPINE. [Concomitant]
     Active Substance: NIFEDIPINE
     Dosage: UNK
  3. MIRTAZAPINE. [Concomitant]
     Active Substance: MIRTAZAPINE
     Dosage: UNK
  4. QUINAPRIL. [Concomitant]
     Active Substance: QUINAPRIL
     Dosage: UNK
  5. SALBUTAMOL [Concomitant]
     Active Substance: ALBUTEROL
     Dosage: UNK
  6. LORAZEPAM. [Suspect]
     Active Substance: LORAZEPAM
     Dosage: 1 MG, 1X/DAY
     Route: 048
  7. OXYCODONE AND ACETAMINOPHEN [Suspect]
     Active Substance: ACETAMINOPHEN\OXYCODONE HYDROCHLORIDE
     Dosage: 1 DF, 4X/DAY
     Route: 048

REACTIONS (1)
  - Toxicity to various agents [Fatal]
